FAERS Safety Report 6756509-9 (Version None)
Quarter: 2010Q2

REPORT INFORMATION
  Report Type: 
  Country: None (occurrence: None)
  Receive Date: 20100604
  Receipt Date: 20100602
  Transmission Date: 20101027
  Serious: Yes (Hospitalization)
  Sender: FDA-Public Use
  Company Number: B0657240A

PATIENT
  Sex: Male

DRUGS (7)
  1. ARIXTRA [Suspect]
     Route: 058
     Dates: start: 20080101
  2. CORTANCYL [Concomitant]
     Indication: PAIN
     Route: 048
  3. CACIT [Concomitant]
     Route: 048
  4. LASIX [Concomitant]
     Route: 048
  5. TAMSULOSINE [Concomitant]
     Indication: BENIGN PROSTATIC HYPERPLASIA
     Route: 048
  6. ZOPICLONE [Concomitant]
     Route: 065
  7. FORTIMEL [Concomitant]
     Route: 065

REACTIONS (5)
  - CONTRAINDICATION TO MEDICAL TREATMENT [None]
  - HAEMATOMA [None]
  - NORMOCHROMIC NORMOCYTIC ANAEMIA [None]
  - OEDEMA PERIPHERAL [None]
  - WOUND HAEMORRHAGE [None]
